APPROVED DRUG PRODUCT: PERPHENAZINE AND AMITRIPTYLINE HYDROCHLORIDE
Active Ingredient: AMITRIPTYLINE HYDROCHLORIDE; PERPHENAZINE
Strength: 25MG;4MG
Dosage Form/Route: TABLET;ORAL
Application: A071064 | Product #001
Applicant: FOSUN PHARMA USA INC
Approved: Nov 27, 1987 | RLD: No | RS: No | Type: DISCN